FAERS Safety Report 7832861-8 (Version None)
Quarter: 2011Q4

REPORT INFORMATION
  Report Type: 
  Country: None (occurrence: None)
  Receive Date: 20111024
  Receipt Date: 20081215
  Transmission Date: 20120403
  Serious: No
  Sender: FDA-Public Use
  Company Number: 2008BI028136

PATIENT
  Sex: Female

DRUGS (2)
  1. TYSABRI [Suspect]
     Indication: MULTIPLE SCLEROSIS
     Route: 042
     Dates: start: 20080221, end: 20080807
  2. AVONEX [Concomitant]
     Indication: MULTIPLE SCLEROSIS
     Route: 030
     Dates: start: 20090104

REACTIONS (14)
  - FATIGUE [None]
  - NEURALGIA [None]
  - HEADACHE [None]
  - CHILLS [None]
  - DYSTONIA [None]
  - DIZZINESS [None]
  - HYPOAESTHESIA [None]
  - HYPERSENSITIVITY [None]
  - OEDEMA PERIPHERAL [None]
  - PAIN IN EXTREMITY [None]
  - ANXIETY [None]
  - MUSCLE SPASMS [None]
  - TRIGEMINAL NEURALGIA [None]
  - ASTHENIA [None]
